FAERS Safety Report 25082755 (Version 10)
Quarter: 2025Q3

REPORT INFORMATION
  Report Type: Spontaneous
  Country: CA (occurrence: CA)
  Receive Date: 20250317
  Receipt Date: 20250901
  Transmission Date: 20251021
  Serious: Yes (Other)
  Sender: ASTELLAS
  Company Number: CA-PFIZER INC-PV202400167799

PATIENT
  Age: 58 Year
  Sex: Male
  Weight: 100 kg

DRUGS (37)
  1. PADCEV [Suspect]
     Active Substance: ENFORTUMAB VEDOTIN-EJFV
     Indication: Transitional cell carcinoma urethra
     Route: 042
     Dates: start: 20250108
  2. PADCEV [Suspect]
     Active Substance: ENFORTUMAB VEDOTIN-EJFV
     Route: 042
     Dates: start: 20250306, end: 20250306
  3. PADCEV [Suspect]
     Active Substance: ENFORTUMAB VEDOTIN-EJFV
     Route: 042
     Dates: start: 20250312, end: 20250312
  4. PADCEV [Suspect]
     Active Substance: ENFORTUMAB VEDOTIN-EJFV
     Route: 042
     Dates: start: 20241218
  5. PADCEV [Suspect]
     Active Substance: ENFORTUMAB VEDOTIN-EJFV
     Route: 042
     Dates: start: 20250422
  6. PADCEV [Suspect]
     Active Substance: ENFORTUMAB VEDOTIN-EJFV
     Route: 042
     Dates: start: 20250429, end: 20250429
  7. PADCEV [Suspect]
     Active Substance: ENFORTUMAB VEDOTIN-EJFV
     Route: 042
     Dates: start: 20250513, end: 20250513
  8. PADCEV [Suspect]
     Active Substance: ENFORTUMAB VEDOTIN-EJFV
     Route: 042
     Dates: start: 20250520, end: 20250520
  9. PADCEV [Suspect]
     Active Substance: ENFORTUMAB VEDOTIN-EJFV
     Route: 042
     Dates: start: 20250603
  10. PADCEV [Suspect]
     Active Substance: ENFORTUMAB VEDOTIN-EJFV
     Route: 042
     Dates: start: 20250612, end: 20250612
  11. PADCEV [Suspect]
     Active Substance: ENFORTUMAB VEDOTIN-EJFV
     Route: 042
     Dates: start: 20250626, end: 20250626
  12. PADCEV [Suspect]
     Active Substance: ENFORTUMAB VEDOTIN-EJFV
     Route: 042
     Dates: start: 20250703, end: 20250703
  13. PADCEV [Suspect]
     Active Substance: ENFORTUMAB VEDOTIN-EJFV
     Route: 042
     Dates: start: 20250715, end: 20250715
  14. PADCEV [Suspect]
     Active Substance: ENFORTUMAB VEDOTIN-EJFV
     Route: 042
     Dates: start: 20250722, end: 20250722
  15. PADCEV [Suspect]
     Active Substance: ENFORTUMAB VEDOTIN-EJFV
     Route: 042
     Dates: start: 20250805
  16. PADCEV [Suspect]
     Active Substance: ENFORTUMAB VEDOTIN-EJFV
     Route: 042
     Dates: start: 20250812
  17. PADCEV [Suspect]
     Active Substance: ENFORTUMAB VEDOTIN-EJFV
     Route: 042
     Dates: start: 20250826
  18. KEYTRUDA [Suspect]
     Active Substance: PEMBROLIZUMAB
     Indication: Transitional cell carcinoma urethra
     Route: 065
     Dates: start: 20241218, end: 20241218
  19. ASPIRIN [Concomitant]
     Active Substance: ASPIRIN
     Indication: Product used for unknown indication
     Route: 065
  20. DEXILANT [Concomitant]
     Active Substance: DEXLANSOPRAZOLE
     Indication: Product used for unknown indication
     Route: 065
  21. NITROGLYCERIN [Concomitant]
     Active Substance: NITROGLYCERIN
     Indication: Product used for unknown indication
     Route: 065
  22. PROCHLORAZINE [Concomitant]
     Indication: Product used for unknown indication
     Route: 065
  23. REFRESH [POLYVINYL ALCOHOL;POVIDONE] [Concomitant]
     Indication: Product used for unknown indication
     Route: 065
  24. REPATHA [Concomitant]
     Active Substance: EVOLOCUMAB
     Indication: Product used for unknown indication
     Route: 065
  25. SENNA [Concomitant]
     Active Substance: SENNOSIDES
     Indication: Product used for unknown indication
     Route: 065
  26. TYLENOL [Concomitant]
     Active Substance: ACETAMINOPHEN
     Indication: Product used for unknown indication
     Route: 065
  27. OLANZAPINE [Concomitant]
     Active Substance: OLANZAPINE
     Indication: Product used for unknown indication
     Route: 065
  28. AMLODIPINE [Concomitant]
     Active Substance: AMLODIPINE BESYLATE
     Indication: Product used for unknown indication
     Route: 065
  29. LORAZEPAM [Concomitant]
     Active Substance: LORAZEPAM
     Indication: Product used for unknown indication
     Route: 065
  30. HYDROMORPHONE [Concomitant]
     Active Substance: HYDROMORPHONE
     Indication: Product used for unknown indication
     Route: 065
  31. APIXABAN [Concomitant]
     Active Substance: APIXABAN
     Indication: Product used for unknown indication
     Route: 065
  32. MAGNESIUM [Concomitant]
     Active Substance: MAGNESIUM
     Indication: Product used for unknown indication
     Route: 065
  33. METOPROLOL [Concomitant]
     Active Substance: METOPROLOL
     Indication: Product used for unknown indication
     Route: 065
  34. IRBESARTAN [Concomitant]
     Active Substance: IRBESARTAN
     Indication: Product used for unknown indication
     Route: 065
  35. EZETIMIBE [Concomitant]
     Active Substance: EZETIMIBE
     Indication: Product used for unknown indication
     Route: 065
  36. DEXAMETHASONE [Concomitant]
     Active Substance: DEXAMETHASONE
     Indication: Product used for unknown indication
     Dosage: 4 MG, 1X/DAY
     Route: 048
     Dates: start: 20250603
  37. PREDNISONE [Concomitant]
     Active Substance: PREDNISONE
     Indication: Product used for unknown indication
     Route: 065

REACTIONS (16)
  - Immune-mediated enterocolitis [Not Recovered/Not Resolved]
  - Neuropathy peripheral [Not Recovered/Not Resolved]
  - Dry skin [Not Recovered/Not Resolved]
  - Hypogeusia [Not Recovered/Not Resolved]
  - Weight fluctuation [Unknown]
  - Lacrimation increased [Not Recovered/Not Resolved]
  - Diarrhoea [Recovered/Resolved]
  - Fatigue [Not Recovered/Not Resolved]
  - Influenza like illness [Unknown]
  - Rash [Unknown]
  - Vomiting [Unknown]
  - Dehydration [Unknown]
  - Nausea [Recovered/Resolved]
  - Decreased appetite [Recovering/Resolving]
  - Dry mouth [Unknown]
  - Dyspepsia [Unknown]

NARRATIVE: CASE EVENT DATE: 20250101
